FAERS Safety Report 9194308 (Version 2)
Quarter: 2013Q2

REPORT INFORMATION
  Report Type: Report from Study
  Country: US (occurrence: US)
  Receive Date: 20130327
  Receipt Date: 20130424
  Transmission Date: 20140414
  Serious: Yes (Death, Hospitalization)
  Sender: FDA-Public Use
  Company Number: US-SPECTRUM PHARMACEUTICALS, INC.-13-Z-US-00086

PATIENT
  Sex: 0

DRUGS (17)
  1. ZEVALIN [Suspect]
     Indication: MANTLE CELL LYMPHOMA
     Dosage: 1 DF, SINGLE
     Route: 042
     Dates: start: 20130312, end: 20130312
  2. VELCADE [Suspect]
     Indication: MANTLE CELL LYMPHOMA
     Dosage: 3.1 MG, UNK
     Route: 058
     Dates: start: 20130305, end: 20130312
  3. RITUXIMAB [Suspect]
     Indication: MANTLE CELL LYMPHOMA
     Dosage: 500 MG, SINGLE
     Route: 042
     Dates: start: 20130305, end: 20130312
  4. TYLENOL                            /00020001/ [Concomitant]
     Dosage: 650 MG, Q6HR PRN
     Route: 048
  5. DRISDOL [Concomitant]
     Dosage: 5000 UNK, Q 7D
     Route: 048
  6. FLONASE [Concomitant]
     Dosage: 2 DF, PRN DAILY
  7. EMLA                               /00675501/ [Concomitant]
     Dosage: 1 DF, PRN
     Route: 061
  8. ATIVAN [Concomitant]
     Dosage: 1 MG, PRN Q6H
     Route: 048
  9. ZOFRAN                             /00955301/ [Concomitant]
     Dosage: 4 MG, PRN Q8H
     Route: 042
  10. PROTONIX                           /01263201/ [Concomitant]
     Dosage: 40 MG, Q12H
  11. ZYLOPRIM [Concomitant]
     Dosage: 300 MG, BID
  12. MORPHINE SULPHATE [Concomitant]
     Dosage: 30 MG, Q12H
     Route: 048
  13. MORPHINE SULPHATE [Concomitant]
     Dosage: 15 MG, Q4H
  14. DOXYCYCLINE [Concomitant]
     Dosage: 100 MG, BID
     Route: 048
  15. LOVENOX [Concomitant]
     Dosage: 90 MG, Q12H
     Route: 058
  16. AMBIEN [Concomitant]
     Dosage: 10 MG, PRN QHS
     Route: 048
  17. MAGNESIUM OXIDE [Concomitant]
     Dosage: 400 MG, BID
     Route: 048

REACTIONS (1)
  - Disease progression [Fatal]
